FAERS Safety Report 6256324-9 (Version None)
Quarter: 2009Q3

REPORT INFORMATION
  Report Type: 
  Country: None (occurrence: None)
  Receive Date: 20090706
  Receipt Date: 20090624
  Transmission Date: 20100115
  Serious: Yes (Hospitalization)
  Sender: FDA-Public Use
  Company Number: JP-BAYER-200912110BYL

PATIENT
  Age: 65 Year
  Sex: Female

DRUGS (2)
  1. BUFFERIN A [Suspect]
     Indication: PYREXIA
     Route: 048
  2. ANTIBIOTICS [Concomitant]
     Indication: PYELONEPHRITIS ACUTE
     Route: 041

REACTIONS (1)
  - STEVENS-JOHNSON SYNDROME [None]
